FAERS Safety Report 8152532-0 (Version None)
Quarter: 2012Q1

REPORT INFORMATION
  Report Type: 
  Country: None (occurrence: None)
  Receive Date: 20120221
  Receipt Date: 20120215
  Transmission Date: 20120608
  Serious: Yes (Death, Hospitalization, Other)
  Sender: FDA-Public Use
  Company Number: FR-BRISTOL-MYERS SQUIBB COMPANY-16383119

PATIENT
  Age: 59 Year
  Sex: Male

DRUGS (5)
  1. CETUXIMAB [Suspect]
     Indication: COLORECTAL CANCER
     Dosage: INITIALLY 400MG/M2 THEN 250MG/M2(3 CURES) 2ND CURE WAS TAKEN ON 28DEC07
     Route: 042
     Dates: start: 20071218, end: 20080201
  2. FLUOROURACIL [Suspect]
     Indication: COLORECTAL CANCER
     Dosage: 3 CURES 2ND CURE WAS TAKEN ON 28DEC07
     Route: 065
     Dates: start: 20071218, end: 20080201
  3. LEVOLEUCOVORIN CALCIUM [Suspect]
     Indication: COLORECTAL CANCER
     Dosage: INJECTION 3CURES 2ND CURE WAS TAKEN ON 28DEC07
     Route: 042
     Dates: start: 20071218, end: 20080201
  4. SINTROM [Suspect]
     Dosage: OVERDOSE AT BEGINING OF JAN08
     Dates: start: 20080101, end: 20080102
  5. IRINOTECAN HCL [Suspect]
     Indication: COLORECTAL CANCER
     Dosage: OR 180MG/M2  3 CURES 2ND CURE WAS TAKEN ON 28DEC07
     Route: 042
     Dates: start: 20071218, end: 20080201

REACTIONS (4)
  - OVERDOSE [None]
  - SUBILEUS [None]
  - INTERNATIONAL NORMALISED RATIO INCREASED [None]
  - DRUG ERUPTION [None]
